FAERS Safety Report 6579315-7 (Version None)
Quarter: 2010Q1

REPORT INFORMATION
  Report Type: 
  Country: None (occurrence: None)
  Receive Date: 20100212
  Receipt Date: 20100205
  Transmission Date: 20100710
  Serious: Yes (Death, Other)
  Sender: FDA-Public Use
  Company Number: US-ALLERGAN-0903237US

PATIENT
  Age: 10 Year
  Sex: Female

DRUGS (2)
  1. BOTOX [Suspect]
     Indication: MUSCLE SPASMS
     Dosage: UNK, SINGLE
     Dates: start: 20080211, end: 20080211
  2. VALIUM [Concomitant]
     Indication: INSOMNIA

REACTIONS (5)
  - BOTULISM [None]
  - DYSPHAGIA [None]
  - OVERDOSE [None]
  - PARALYSIS [None]
  - RESPIRATORY FAILURE [None]
